FAERS Safety Report 24782888 (Version 2)
Quarter: 2025Q1

REPORT INFORMATION
  Report Type: Report from Study
  Country: US (occurrence: US)
  Receive Date: 20241227
  Receipt Date: 20250107
  Transmission Date: 20250409
  Serious: Yes (Other)
  Sender: RANBAXY
  Company Number: US-SUN PHARMACEUTICAL INDUSTRIES LTD-2024R1-486763

PATIENT

DRUGS (4)
  1. DECITABINE [Suspect]
     Active Substance: DECITABINE
     Indication: Acute myeloid leukaemia
     Route: 042
  2. THIOGUANINE [Suspect]
     Active Substance: THIOGUANINE
     Indication: Acute myeloid leukaemia
     Dosage: 80 MILLIGRAM/SQ. METER, DAILY
     Route: 065
  3. THIOGUANINE [Suspect]
     Active Substance: THIOGUANINE
     Dosage: 120 MILLIGRAM/SQ. METER, DAILY
     Route: 065
  4. THIOGUANINE [Suspect]
     Active Substance: THIOGUANINE
     Dosage: 160 MILLIGRAM/SQ. METER, DAILY
     Route: 065

REACTIONS (1)
  - Neoplasm progression [Unknown]
